FAERS Safety Report 10601014 (Version 2)
Quarter: 2014Q4

REPORT INFORMATION
  Report Type: Report from Study
  Country: AU (occurrence: AU)
  Receive Date: 20141124
  Receipt Date: 20141224
  Transmission Date: 20150529
  Serious: Yes (Hospitalization, Other)
  Sender: FDA-Public Use
  Company Number: PHHY2014AU147571

PATIENT
  Sex: Male

DRUGS (1)
  1. NILOTINIB [Suspect]
     Active Substance: NILOTINIB
     Indication: CHRONIC MYELOID LEUKAEMIA
     Dosage: 400 MG, BID
     Route: 048
     Dates: start: 20100909, end: 20140904

REACTIONS (3)
  - Acute myocardial infarction [Recovered/Resolved with Sequelae]
  - Gene mutation identification test positive [Unknown]
  - Angiopathy [Unknown]

NARRATIVE: CASE EVENT DATE: 2014
